FAERS Safety Report 5366263-3 (Version None)
Quarter: 2007Q2

REPORT INFORMATION
  Report Type: 
  Country: None (occurrence: None)
  Receive Date: 20070619
  Receipt Date: 20070619
  Transmission Date: 20071010
  Serious: Yes (Hospitalization)
  Sender: FDA-Public Use
  Company Number: None

PATIENT
  Age: 73 Year
  Sex: Male
  Weight: 102 kg

DRUGS (1)
  1. FUROSEMIDE [Suspect]
     Dosage: 40MG DAILY PO
     Route: 048

REACTIONS (8)
  - BLOOD CREATININE INCREASED [None]
  - BLOOD SODIUM DECREASED [None]
  - BLOOD UREA INCREASED [None]
  - DIZZINESS [None]
  - DYSPNOEA [None]
  - FATIGUE [None]
  - HYPOTENSION [None]
  - HYPOVOLAEMIA [None]
